FAERS Safety Report 6412796-8 (Version None)
Quarter: 2009Q4

REPORT INFORMATION
  Report Type: 
  Country: None (occurrence: None)
  Receive Date: 20091023
  Receipt Date: 20091014
  Transmission Date: 20100525
  Serious: Yes (Other)
  Sender: FDA-Public Use
  Company Number: US-ELI_LILLY_AND_COMPANY-US200910003346

PATIENT
  Age: 77 Year
  Sex: Female

DRUGS (2)
  1. FORTEO [Suspect]
     Indication: OSTEOPOROSIS
     Dosage: UNK, UNK
     Dates: start: 20090801
  2. ANTIHYPERTENSIVES [Concomitant]

REACTIONS (6)
  - ALOPECIA [None]
  - DIZZINESS [None]
  - HYPOTENSION [None]
  - INFLUENZA [None]
  - LOSS OF CONSCIOUSNESS [None]
  - PAIN [None]
